FAERS Safety Report 5161411-2 (Version None)
Quarter: 2006Q4

REPORT INFORMATION
  Report Type: 
  Country: None (occurrence: None)
  Receive Date: 20061130
  Receipt Date: 20060719
  Transmission Date: 20070319
  Serious: No
  Sender: FDA-Public Use
  Company Number: US-GLAXOSMITHKLINE-A0612812A

PATIENT
  Age: 30 Year
  Sex: Female

DRUGS (2)
  1. WELLBUTRIN XL [Suspect]
     Indication: ANXIETY
     Dosage: 300MG PER DAY
     Route: 048
     Dates: start: 20030101
  2. MULTI-VITAMIN [Concomitant]

REACTIONS (9)
  - ADVERSE DRUG REACTION [None]
  - AGITATION [None]
  - ANXIETY [None]
  - DERMATITIS [None]
  - PERIVASCULAR DERMATITIS [None]
  - RASH [None]
  - THERAPEUTIC RESPONSE UNEXPECTED [None]
  - TINEA INFECTION [None]
  - WEIGHT DECREASED [None]
